FAERS Safety Report 4283322-7 (Version None)
Quarter: 2004Q1

REPORT INFORMATION
  Report Type: 
  Country: None (occurrence: None)
  Receive Date: 20040129
  Receipt Date: 20031203
  Transmission Date: 20041129
  Serious: Yes (Hospitalization, Other)
  Sender: FDA-Public Use
  Company Number: NSADSS2002008890

PATIENT
  Age: 68 Year
  Sex: Male
  Weight: 64 kg

DRUGS (5)
  1. REMICADE [Suspect]
     Indication: RHEUMATOID ARTHRITIS
     Dosage: SEE IMAGE
     Route: 041
     Dates: start: 20010412, end: 20010412
  2. REMICADE [Suspect]
     Indication: RHEUMATOID ARTHRITIS
     Dosage: SEE IMAGE
     Route: 041
     Dates: start: 20020103, end: 20020103
  3. METHOTREXATE [Concomitant]
  4. DOLCIDIUM (INDOMETACIN) [Concomitant]
  5. PREDNISONE [Concomitant]

REACTIONS (7)
  - AGRANULOCYTOSIS [None]
  - CELLULITIS [None]
  - ESCHERICHIA URINARY TRACT INFECTION [None]
  - INFLAMMATION [None]
  - LEUKOPENIA [None]
  - MALAISE [None]
  - OEDEMA PERIPHERAL [None]
